FAERS Safety Report 5596472-X (Version None)
Quarter: 2008Q1

REPORT INFORMATION
  Report Type: 
  Country: None (occurrence: None)
  Receive Date: 20080118
  Receipt Date: 20080109
  Transmission Date: 20080703
  Serious: Yes (Other)
  Sender: FDA-Public Use
  Company Number: US-PFIZER INC-2007101187

PATIENT
  Sex: Male
  Weight: 90.3 kg

DRUGS (23)
  1. LIPITOR [Suspect]
  2. DIOVAN HCT [Concomitant]
     Dosage: TEXT:160/25MG
  3. ADVAIR DISKUS 100/50 [Concomitant]
     Dosage: TEXT:250/50MG
  4. ADVAIR DISKUS 100/50 [Concomitant]
     Dosage: TEXT:100/50MG
     Dates: end: 20050606
  5. FLONASE [Concomitant]
     Dosage: TEXT:ONE PUFF TWICE DAILY
     Dates: end: 20050606
  6. ATIVAN [Concomitant]
  7. ZOLOFT [Concomitant]
  8. COMBIVENT [Concomitant]
     Dosage: TEXT:TWO PUFFS FOUR TIMES DAILY
  9. NASONEX [Concomitant]
  10. ALLEGRA [Concomitant]
     Dates: end: 20050901
  11. CLARITIN [Concomitant]
  12. CLONAZEPAM [Concomitant]
  13. AMBIEN [Concomitant]
  14. QVAR 40 [Concomitant]
  15. AVODART [Concomitant]
  16. PREVACID [Concomitant]
  17. NASALCROM [Concomitant]
  18. ZETIA [Concomitant]
  19. WELLBUTRIN [Concomitant]
  20. ZOLPIDEM TARTRATE [Concomitant]
  21. ALPRAZOLAM [Concomitant]
  22. PRILOSEC [Concomitant]
  23. CIMETIDINE [Concomitant]

REACTIONS (7)
  - AMYOTROPHIC LATERAL SCLEROSIS [None]
  - BALANCE DISORDER [None]
  - CAROTID ARTERIOSCLEROSIS [None]
  - DIZZINESS [None]
  - HYPERSENSITIVITY [None]
  - MYALGIA [None]
  - OSTEOARTHRITIS [None]
